FAERS Safety Report 6535718-8 (Version None)
Quarter: 2010Q1

REPORT INFORMATION
  Report Type: 
  Country: None (occurrence: None)
  Receive Date: 20100111
  Receipt Date: 20100111
  Transmission Date: 20100710
  Serious: Yes (Life-Threatening, Other)
  Sender: FDA-Public Use
  Company Number: None

PATIENT
  Age: 56 Year
  Sex: Female
  Weight: 56.6996 kg

DRUGS (3)
  1. SYNTHROID [Suspect]
     Indication: BASEDOW'S DISEASE
     Dates: start: 20050301, end: 20070101
  2. SYNTHROID [Suspect]
     Indication: BASEDOW'S DISEASE
     Dates: start: 20070102, end: 20100109
  3. THYROID TAB [Concomitant]

REACTIONS (12)
  - ALOPECIA [None]
  - ARTHRALGIA [None]
  - BONE PAIN [None]
  - BRADYPHRENIA [None]
  - CARPAL TUNNEL SYNDROME [None]
  - DEPRESSION [None]
  - GASTROINTESTINAL DISORDER [None]
  - IMPAIRED WORK ABILITY [None]
  - INSOMNIA [None]
  - NAIL DISORDER [None]
  - RENAL DISORDER [None]
  - SKIN DISORDER [None]
